FAERS Safety Report 19539500 (Version 2)
Quarter: 2022Q1

REPORT INFORMATION
  Report Type: Spontaneous
  Country: CA (occurrence: CA)
  Receive Date: 20210713
  Receipt Date: 20220228
  Transmission Date: 20220424
  Serious: Yes (Hospitalization, Other)
  Sender: FDA-Public Use
  Company Number: CA-SA-SAC20210708001287

PATIENT
  Age: 52 Year
  Sex: Female

DRUGS (12)
  1. RANITIDINE HYDROCHLORIDE [Suspect]
     Active Substance: RANITIDINE HYDROCHLORIDE
     Indication: Pain
     Dosage: 150 MG
     Route: 048
     Dates: end: 2019
  2. RANITIDINE HYDROCHLORIDE [Suspect]
     Active Substance: RANITIDINE HYDROCHLORIDE
     Indication: Duodenitis
  3. OCTREOTIDE ACETATE [Suspect]
     Active Substance: OCTREOTIDE ACETATE
     Indication: Carcinoid syndrome
     Dosage: 50 UG, Q3D
     Route: 058
  4. SANDOSTATIN [Suspect]
     Active Substance: OCTREOTIDE ACETATE
     Indication: Carcinoid syndrome
     Dosage: 30 MG, Q3W
     Route: 030
     Dates: start: 20190909
  5. SANDOSTATIN [Suspect]
     Active Substance: OCTREOTIDE ACETATE
     Dosage: 30 MG, Q3W
     Route: 030
  6. SANDOSTATIN [Suspect]
     Active Substance: OCTREOTIDE ACETATE
     Dosage: 30 MG, QM
     Route: 058
  7. SANDOSTATIN [Suspect]
     Active Substance: OCTREOTIDE ACETATE
     Dosage: 30 MG
     Route: 030
  8. CALCIUM CARBONATE [Concomitant]
     Active Substance: CALCIUM CARBONATE
     Indication: Product used for unknown indication
     Route: 048
  9. MAGNESIUM CARBONATE [Concomitant]
     Active Substance: MAGNESIUM CARBONATE
     Indication: Product used for unknown indication
     Route: 048
  10. MAGNESIUM TRISILICATE [Concomitant]
     Active Substance: MAGNESIUM TRISILICATE
     Indication: Product used for unknown indication
     Route: 048
  11. GRAVOL [Concomitant]
     Active Substance: DIMENHYDRINATE
     Indication: Product used for unknown indication
  12. METFORMIN [Concomitant]
     Active Substance: METFORMIN HYDROCHLORIDE
     Indication: Product used for unknown indication

REACTIONS (53)
  - Injection site erythema [Recovered/Resolved]
  - Injection site pain [Recovered/Resolved]
  - Injection site warmth [Not Recovered/Not Resolved]
  - Injection site haemorrhage [Recovered/Resolved]
  - Atrial fibrillation [Recovered/Resolved]
  - Contusion [Unknown]
  - Palpitations [Unknown]
  - Oropharyngeal pain [Unknown]
  - Abdominal discomfort [Unknown]
  - Abdominal pain [Unknown]
  - Abdominal pain upper [Recovered/Resolved]
  - Back pain [Not Recovered/Not Resolved]
  - Blood glucose increased [Recovering/Resolving]
  - Blood pressure decreased [Recovering/Resolving]
  - Blood pressure increased [Recovering/Resolving]
  - Blood pressure systolic increased [Not Recovered/Not Resolved]
  - Body temperature decreased [Unknown]
  - Bowel movement irregularity [Unknown]
  - Bronchitis [Unknown]
  - Cough [Unknown]
  - Depression [Unknown]
  - Diarrhoea [Unknown]
  - Dyspepsia [Unknown]
  - Dyspnoea [Recovering/Resolving]
  - Erythema [Recovered/Resolved]
  - Extrasystoles [Unknown]
  - Fall [Unknown]
  - Fatigue [Unknown]
  - Flushing [Unknown]
  - Headache [Unknown]
  - Heart rate decreased [Unknown]
  - Heart rate irregular [Recovering/Resolving]
  - Influenza [Unknown]
  - Musculoskeletal discomfort [Unknown]
  - Needle issue [Unknown]
  - Nightmare [Recovered/Resolved]
  - Pain [Unknown]
  - Pain in extremity [Not Recovered/Not Resolved]
  - Pyrexia [Unknown]
  - Rash [Recovered/Resolved]
  - Sputum discoloured [Unknown]
  - Tachycardia [Recovering/Resolving]
  - Tooth fracture [Unknown]
  - Uterine polyp [Unknown]
  - Skin lesion [Unknown]
  - Feeling abnormal [Unknown]
  - Vaginal haemorrhage [Unknown]
  - Inappropriate schedule of product administration [Unknown]
  - Diarrhoea [Recovered/Resolved]
  - Discomfort [Unknown]
  - Sinus bradycardia [Unknown]
  - Atrioventricular block first degree [Unknown]
  - Electrocardiogram T wave amplitude decreased [Unknown]

NARRATIVE: CASE EVENT DATE: 20130618
